FAERS Safety Report 5872835-X (Version None)
Quarter: 2008Q3

REPORT INFORMATION
  Report Type: 
  Country: None (occurrence: None)
  Receive Date: 20080903
  Receipt Date: 20080812
  Transmission Date: 20090109
  Serious: No
  Sender: FDA-Public Use
  Company Number: ADE# 08-125

PATIENT
  Age: 93 Year
  Sex: Female
  Weight: 58 kg

DRUGS (16)
  1. ZOLPIDEM TARTRATE [Suspect]
     Indication: SLEEP DISORDER
     Dosage: ONE TABLET
     Dates: start: 20080630
  2. WARFARIN SODIUM [Concomitant]
  3. REMERON [Concomitant]
  4. ASPIRIN [Concomitant]
  5. ATENOLOL [Concomitant]
  6. FUROSEMIDE [Concomitant]
  7. LISINOPRIL [Concomitant]
  8. SOTALOL HCL [Concomitant]
  9. RANOLOZINE [Concomitant]
  10. NITROGLYCERIN [Concomitant]
  11. TYLENOL (CAPLET) [Concomitant]
  12. VICODIN [Concomitant]
  13. CIPRO [Concomitant]
  14. DOPAMINE IV [Concomitant]
  15. MORPHINE [Concomitant]
  16. VANCO IV [Concomitant]

REACTIONS (1)
  - CONFUSIONAL STATE [None]
